FAERS Safety Report 8284133 (Version 4)
Quarter: 2012Q4

REPORT INFORMATION
  Report Type: Report from Study
  Country: DE (occurrence: DE)
  Receive Date: 20111212
  Receipt Date: 20121002
  Transmission Date: 20130627
  Serious: Yes (Hospitalization, Other)
  Sender: FDA-Public Use
  Company Number: DE-JNJFOC-20111200174

PATIENT
  Age: 37 Year
  Sex: Female
  Weight: 59 kg

DRUGS (27)
  1. PALIPERIDONE PALMITATE [Suspect]
     Indication: SCHIZOPHRENIA
     Dates: start: 20110614, end: 20110721
  2. RISPERDAL [Concomitant]
     Indication: PROPHYLAXIS
     Dates: start: 20110608
  3. RISPERDAL [Concomitant]
     Indication: PROPHYLAXIS
     Dates: start: 20110516
  4. RISPERDAL [Concomitant]
     Indication: PROPHYLAXIS
     Dates: start: 20110622
  5. RISPERDAL [Concomitant]
     Indication: PROPHYLAXIS
     Dates: start: 20110621
  6. RISPERDAL [Concomitant]
     Indication: PROPHYLAXIS
     Dates: start: 20110617
  7. RISPERDAL [Concomitant]
     Indication: PROPHYLAXIS
     Dates: start: 20110609
  8. RISPERDAL [Concomitant]
     Indication: PROPHYLAXIS
     Dates: start: 20110629
  9. RISPERDAL [Concomitant]
     Indication: PROPHYLAXIS
     Dates: start: 20110607
  10. RISPERDAL [Concomitant]
     Indication: PROPHYLAXIS
     Dates: start: 20110606
  11. RISPERDAL [Concomitant]
     Indication: PROPHYLAXIS
     Dates: start: 20110518
  12. SOLIAN [Concomitant]
     Indication: PROPHYLAXIS
     Dates: start: 20110512
  13. SOLIAN [Concomitant]
     Indication: PROPHYLAXIS
     Dates: start: 20110518
  14. SOLIAN [Concomitant]
     Indication: PROPHYLAXIS
     Dates: start: 20110516
  15. SEROQUEL [Concomitant]
     Indication: SEDATION
     Dates: start: 20110603
  16. SEROQUEL [Concomitant]
     Indication: SEDATION
     Dates: start: 20110601
  17. SEROQUEL [Concomitant]
     Indication: SEDATION
     Dates: start: 20110531
  18. SEROQUEL [Concomitant]
     Indication: SEDATION
     Dates: start: 20110604
  19. SEROQUEL [Concomitant]
     Indication: SEDATION
     Dates: start: 20110620
  20. SEROQUEL [Concomitant]
     Indication: SEDATION
     Dates: start: 20110804
  21. SEROQUEL [Concomitant]
     Indication: SEDATION
     Dates: start: 20110805
  22. SEROQUEL [Concomitant]
     Indication: SEDATION
     Dates: start: 20110619
  23. REBOXETINE [Concomitant]
     Indication: DEPRESSION
     Dates: start: 20110721
  24. REBOXETINE [Concomitant]
     Indication: DEPRESSION
     Dates: start: 20110802
  25. REBOXETINE [Concomitant]
     Indication: DEPRESSION
     Dates: start: 20110720
  26. REBOXETINE [Concomitant]
     Indication: DEPRESSION
     Dates: start: 20110523
  27. REBOXETINE [Concomitant]
     Indication: DEPRESSION
     Dates: start: 20110708

REACTIONS (1)
  - Schizophrenia [Recovered/Resolved]
